FAERS Safety Report 9980144 (Version 1)
Quarter: 2014Q1

REPORT INFORMATION
  Report Type: Report from Study
  Country: US (occurrence: US)
  Receive Date: 20140307
  Receipt Date: 20140307
  Transmission Date: 20141002
  Serious: No
  Sender: FDA-Public Use
  Company Number: US-ABBVIE-13P-163-1176574-00

PATIENT
  Age: 52 Year
  Sex: Female

DRUGS (7)
  1. HUMIRA [Suspect]
     Indication: CROHN^S DISEASE
     Dates: start: 20131017, end: 20131128
  2. LOMOTIL [Concomitant]
     Indication: DIARRHOEA
     Dosage: 0.25/2.5 MG
     Route: 048
  3. LOMOTIL [Concomitant]
     Indication: CROHN^S DISEASE
  4. SULFASALAZINE [Concomitant]
     Indication: CROHN^S DISEASE
     Route: 048
  5. PAXIL [Concomitant]
     Indication: ANXIOLYTIC THERAPY
     Route: 048
  6. METHOTREXATE [Concomitant]
     Indication: CROHN^S DISEASE
     Dosage: MONDAY, WEDNESDAY, FRIDAY
     Route: 048
  7. FERROUS SULFATE [Concomitant]
     Indication: ANAEMIA
     Route: 048

REACTIONS (7)
  - Somnolence [Recovered/Resolved]
  - Dizziness [Not Recovered/Not Resolved]
  - Feeling abnormal [Not Recovered/Not Resolved]
  - Malaise [Not Recovered/Not Resolved]
  - Crohn^s disease [Not Recovered/Not Resolved]
  - Therapeutic response unexpected [Unknown]
  - Eczema [Recovering/Resolving]
